FAERS Safety Report 5504058-8 (Version None)
Quarter: 2007Q4

REPORT INFORMATION
  Report Type: 
  Country: None (occurrence: None)
  Receive Date: 20071030
  Receipt Date: 20071017
  Transmission Date: 20080405
  Serious: Yes (Other)
  Sender: FDA-Public Use
  Company Number: 2007VX002574

PATIENT
  Age: 60 Year
  Sex: Male

DRUGS (1)
  1. MESTINON [Suspect]
     Indication: MYASTHENIA GRAVIS

REACTIONS (2)
  - ATRIOVENTRICULAR BLOCK [None]
  - SYNCOPE [None]
